FAERS Safety Report 8442795-6 (Version None)
Quarter: 2012Q2

REPORT INFORMATION
  Report Type: 
  Country: None (occurrence: None)
  Receive Date: 20120615
  Receipt Date: 20120613
  Transmission Date: 20120825
  Serious: Yes (Other)
  Sender: FDA-Public Use
  Company Number: US-ROCHE-784161

PATIENT
  Sex: Male
  Weight: 93.07 kg

DRUGS (3)
  1. ACCUTANE [Suspect]
     Route: 065
     Dates: start: 19920101, end: 19940301
  2. PREDNISONE [Concomitant]
  3. ACCUTANE [Suspect]
     Indication: ACNE
     Route: 065

REACTIONS (5)
  - INTESTINAL OBSTRUCTION [None]
  - ANXIETY [None]
  - DEPRESSION [None]
  - COLITIS ULCERATIVE [None]
  - INFLAMMATORY BOWEL DISEASE [None]
